FAERS Safety Report 8115671-6 (Version None)
Quarter: 2011Q4

REPORT INFORMATION
  Report Type: 
  Country: None (occurrence: None)
  Receive Date: 20111227
  Receipt Date: 20110915
  Transmission Date: 20120403
  Serious: Yes (Other)
  Sender: FDA-Public Use
  Company Number: PHEH2011US00678

PATIENT
  Age: 54 Year
  Sex: Female
  Weight: 112 kg

DRUGS (1)
  1. GILENYA [Suspect]
     Indication: MULTIPLE SCLEROSIS
     Dosage: 0.5 MG, DAILY, ORAL
     Route: 048
     Dates: start: 20101013

REACTIONS (3)
  - URINARY TRACT INFECTION [None]
  - CYSTITIS [None]
  - VISION BLURRED [None]
